FAERS Safety Report 18546744 (Version 1)
Quarter: 2020Q4

REPORT INFORMATION
  Report Type: Spontaneous
  Country: US (occurrence: US)
  Receive Date: 20201125
  Receipt Date: 20201125
  Transmission Date: 20210114
  Serious: Yes (Hospitalization)
  Sender: FDA-Public Use
  Company Number: US-ASTRAZENECA-2020SF53833

PATIENT
  Age: 20589 Day
  Sex: Female

DRUGS (6)
  1. ASPIRIN. [Concomitant]
     Active Substance: ASPIRIN
     Dosage: 325.0MG UNKNOWN
     Dates: start: 20201110
  2. ASPIRIN. [Concomitant]
     Active Substance: ASPIRIN
     Dosage: 325.0MG UNKNOWN
  3. BABY ASPIRIN [Concomitant]
     Active Substance: ASPIRIN
     Dates: start: 20201111
  4. BRILINTA [Suspect]
     Active Substance: TICAGRELOR
     Indication: ACUTE MYOCARDIAL INFARCTION
     Dosage: 90.0MG UNKNOWN
     Route: 048
     Dates: start: 20201111, end: 20201111
  5. BRILINTA [Suspect]
     Active Substance: TICAGRELOR
     Indication: ACUTE MYOCARDIAL INFARCTION
     Dosage: IN THE EVENING ANOTHER DOSE OF BRILINTA 80MG80.0MG UNKNOWN
     Route: 048
     Dates: start: 20201110, end: 20201111
  6. BRILINTA [Suspect]
     Active Substance: TICAGRELOR
     Indication: ACUTE MYOCARDIAL INFARCTION
     Dosage: 180.0MG UNKNOWN
     Route: 048
     Dates: start: 20201110, end: 20201111

REACTIONS (2)
  - Pulmonary alveolar haemorrhage [Unknown]
  - SARS-CoV-2 test negative [Unknown]

NARRATIVE: CASE EVENT DATE: 20201111
